FAERS Safety Report 12755929 (Version 1)
Quarter: 2016Q3

REPORT INFORMATION
  Report Type: Spontaneous
  Country: CN (occurrence: CN)
  Receive Date: 20160916
  Receipt Date: 20160916
  Transmission Date: 20161109
  Serious: Yes (Other)
  Sender: FDA-Public Use
  Company Number: CN-ELI_LILLY_AND_COMPANY-CN201609003874

PATIENT
  Sex: Female

DRUGS (2)
  1. INDAPAMIDE. [Concomitant]
     Active Substance: INDAPAMIDE
  2. HUMULIN 70/30 [Suspect]
     Active Substance: INSULIN HUMAN
     Indication: DIABETES MELLITUS
     Dosage: 26 U, EACH MORNING
     Route: 058
     Dates: start: 2004

REACTIONS (1)
  - Blindness [Unknown]
